FAERS Safety Report 24748590 (Version 1)
Quarter: 2024Q4

REPORT INFORMATION
  Report Type: Spontaneous
  Country: US (occurrence: None)
  Receive Date: 20241217
  Receipt Date: 20241217
  Transmission Date: 20250114
  Serious: Yes (Disabling, Other)
  Sender: Public
  Company Number: None

PATIENT
  Age: 27 Year
  Sex: Female
  Weight: 90 kg

DRUGS (2)
  1. VRAYLAR [Suspect]
     Active Substance: CARIPRAZINE
  2. TRAZODONE [Suspect]
     Active Substance: TRAZODONE HYDROCHLORIDE

REACTIONS (4)
  - Adverse drug reaction [None]
  - Oculogyric crisis [None]
  - Hallucination, auditory [None]
  - Hallucination, visual [None]

NARRATIVE: CASE EVENT DATE: 20200308
